FAERS Safety Report 4863933-8 (Version None)
Quarter: 2005Q4

REPORT INFORMATION
  Report Type: 
  Country: None (occurrence: None)
  Receive Date: 20051219
  Receipt Date: 20051212
  Transmission Date: 20060501
  Serious: Yes (Death)
  Sender: FDA-Public Use
  Company Number: 2005-135656-NL

PATIENT
  Age: 50 Year
  Sex: Female

DRUGS (3)
  1. MIRTAZAPINE [Suspect]
     Dosage: DF
  2. LEVOTHYROXINE SODIUM [Concomitant]
  3. THIAMAZOLE [Concomitant]

REACTIONS (1)
  - COMPLETED SUICIDE [None]
